FAERS Safety Report 7264505-0 (Version None)
Quarter: 2011Q1

REPORT INFORMATION
  Report Type: 
  Country: None (occurrence: None)
  Receive Date: 20110131
  Receipt Date: 20110121
  Transmission Date: 20110831
  Serious: No
  Sender: FDA-Public Use
  Company Number: US-PFIZER INC-2011016216

PATIENT

DRUGS (2)
  1. ADDERALL 10 [Concomitant]
     Dosage: UNK
  2. PRISTIQ [Suspect]
     Dosage: 50 MG, 1X/DAY

REACTIONS (2)
  - DIZZINESS [None]
  - VERTIGO [None]
